FAERS Safety Report 21301505 (Version 1)
Quarter: 2022Q3

REPORT INFORMATION
  Report Type: Spontaneous
  Country: US (occurrence: None)
  Receive Date: 20220906
  Receipt Date: 20220906
  Transmission Date: 20221026
  Serious: Yes (Hospitalization)
  Sender: FDA-Public Use
  Company Number: None

PATIENT
  Sex: Female

DRUGS (1)
  1. NUCALA [Suspect]
     Active Substance: MEPOLIZUMAB
     Route: 058
     Dates: end: 202208

REACTIONS (5)
  - Influenza like illness [None]
  - Dyspnoea [None]
  - Therapy interrupted [None]
  - Oxygen saturation abnormal [None]
  - Therapy cessation [None]
